FAERS Safety Report 8453024-1 (Version None)
Quarter: 2012Q2

REPORT INFORMATION
  Report Type: 
  Country: None (occurrence: None)
  Receive Date: 20120620
  Receipt Date: 20120504
  Transmission Date: 20120825
  Serious: No
  Sender: FDA-Public Use
  Company Number: US-VERTEX PHARMACEUTICALS INC.-AE-2012-006489

PATIENT
  Sex: Female
  Weight: 85.806 kg

DRUGS (14)
  1. CELEXA [Concomitant]
  2. PEGASYS [Concomitant]
     Indication: HEPATITIS C
     Route: 058
     Dates: start: 20120502
  3. REQUIP [Concomitant]
  4. RIBASPHERE [Concomitant]
     Indication: HEPATITIS C
     Route: 048
     Dates: start: 20120502
  5. SEROQUEL [Concomitant]
  6. OXYCODONE HCL [Concomitant]
  7. PREVACID [Concomitant]
  8. SPIRIVA [Concomitant]
  9. SYMBICORT [Concomitant]
  10. POLYETHYLENE GLYCOL [Concomitant]
  11. INCIVEK [Suspect]
     Indication: HEPATITIS C
     Route: 048
     Dates: start: 20120502
  12. MULTI-VITAMIN [Concomitant]
  13. LISINOPRIL [Concomitant]
  14. ZANAFLEX [Concomitant]

REACTIONS (2)
  - CONSTIPATION [None]
  - DIARRHOEA [None]
